FAERS Safety Report 8862256 (Version 1)
Quarter: 2012Q4

REPORT INFORMATION
  Report Type: 
  Country: BE (occurrence: BE)
  Receive Date: 20121026
  Receipt Date: 20121026
  Transmission Date: 20130627
  Serious: Yes (Death, Hospitalization)
  Sender: FDA-Public Use
  Company Number: BE-PERRIGO-12BE009167

PATIENT
  Age: 61 Year
  Sex: Female

DRUGS (9)
  1. NAPROXEN [Suspect]
     Indication: ARTHRITIS
     Dosage: 500 mg, tid
     Route: 048
  2. NAPROXEN [Suspect]
     Indication: CHEST PAIN
     Dosage: 1.5 g, single
     Route: 048
  3. ATORVASTATIN [Suspect]
     Indication: PRODUCT USED FOR UNKNOWN INDICATION
     Dosage: 10 mg, qd
     Route: 048
  4. METFORMIN [Concomitant]
     Indication: PRODUCT USED FOR UNKNOWN INDICATION
     Dosage: 500 mg, qd
     Route: 048
  5. HYDROCHLOROTHIAZIDE\LISINOPRIL [Concomitant]
     Indication: PRODUCT USED FOR UNKNOWN INDICATION
     Dosage: 20/12.5 mg, qd
     Route: 048
  6. TRAMADOL [Concomitant]
     Indication: PRODUCT USED FOR UNKNOWN INDICATION
     Dosage: 100 mg, bid, prn
     Route: 048
  7. ALLOPURINOL [Concomitant]
     Indication: PRODUCT USED FOR UNKNOWN INDICATION
     Dosage: 300 mg, qd
     Route: 048
  8. RANITIDINE [Concomitant]
     Indication: PRODUCT USED FOR UNKNOWN INDICATION
     Dosage: 500 mg, qd
     Route: 048
  9. QUININE SULFATE [Concomitant]
     Indication: PRODUCT USED FOR UNKNOWN INDICATION
     Dosage: 100 mg, qd
     Route: 048

REACTIONS (40)
  - Toxic epidermal necrolysis [Fatal]
  - Rhabdomyolysis [Fatal]
  - Multi-organ failure [Fatal]
  - Respiratory failure [Fatal]
  - Renal failure acute [Fatal]
  - Hepatic failure [Fatal]
  - Cardiac arrest [Fatal]
  - Muscle necrosis [Fatal]
  - Dyspnoea [Unknown]
  - Chest pain [Unknown]
  - Hypotension [Unknown]
  - Sinus tachycardia [Unknown]
  - Disseminated intravascular coagulation [Fatal]
  - Acidosis [Fatal]
  - Blood lactic acid increased [Fatal]
  - Livedo reticularis [Unknown]
  - Thirst [Unknown]
  - Oliguria [Unknown]
  - Hyperbilirubinaemia [Unknown]
  - Renal infarct [Fatal]
  - Petechiae [Unknown]
  - Rash erythematous [Fatal]
  - Lymphocyte transformation test positive [Unknown]
  - Nikolsky^s sign [Unknown]
  - APACHE II score increased [Unknown]
  - Dermatitis bullous [Fatal]
  - Bradycardia [Unknown]
  - Vomiting [Unknown]
  - Diarrhoea [Fatal]
  - Pallor [Unknown]
  - Restlessness [Unknown]
  - Coagulopathy [Fatal]
  - Blood creatine phosphokinase increased [Unknown]
  - Hyperuricaemia [Unknown]
  - Glomerular filtration rate decreased [Fatal]
  - C-reactive protein increased [Unknown]
  - Fibrin D dimer increased [Unknown]
  - Alanine aminotransferase increased [Unknown]
  - Aspartate aminotransferase increased [Unknown]
  - Gamma-glutamyltransferase increased [Unknown]
